FAERS Safety Report 6843425-7 (Version None)
Quarter: 2010Q3

REPORT INFORMATION
  Report Type: 
  Country: None (occurrence: None)
  Receive Date: 20100712
  Receipt Date: 20100628
  Transmission Date: 20110219
  Serious: Yes (Hospitalization)
  Sender: FDA-Public Use
  Company Number: WAES 1007USA00046

PATIENT
  Age: 58 Year
  Sex: Female

DRUGS (9)
  1. ZETIA [Suspect]
     Indication: HYPERCHOLESTEROLAEMIA
     Dosage: 10 MG/DAILY PO
     Route: 048
     Dates: start: 20080606
  2. BOI-OGI-TO [Concomitant]
  3. AMLODIPINE BESYLATE [Concomitant]
  4. ASPIRIN [Concomitant]
  5. ASPIRIN [Concomitant]
  6. CELECOXIB [Concomitant]
  7. REBAMIPIDE [Concomitant]
  8. THIAMINE MONONITRATE [Concomitant]
  9. VALSARTAN [Concomitant]

REACTIONS (1)
  - RETINAL DETACHMENT [None]
